FAERS Safety Report 5734938-X (Version None)
Quarter: 2008Q2

REPORT INFORMATION
  Report Type: 
  Country: None (occurrence: None)
  Receive Date: 20080508
  Receipt Date: 20080425
  Transmission Date: 20081010
  Serious: Yes (Hospitalization)
  Sender: FDA-Public Use
  Company Number: TRP_05658_2008

PATIENT
  Sex: Male
  Weight: 82.5547 kg

DRUGS (9)
  1. RIBASPHERE [Suspect]
     Indication: HEPATITIS C
     Dosage: 1000 MG QD;ORAL
     Route: 048
     Dates: start: 20071026, end: 20080101
  2. PEG-INTRON [Suspect]
     Indication: HEPATITIS C
     Dosage: 120 UG 1X/WEEK SUBCUTANEOUS
     Route: 058
     Dates: start: 20071026, end: 20080101
  3. VARDENAFIL [Concomitant]
  4. VITAMIN CAP [Concomitant]
  5. ETODOLAC [Concomitant]
  6. TRAMADOL HCL [Concomitant]
  7. LACTIC ACID [Concomitant]
  8. IBUPROFEN [Concomitant]
  9. CITALOPRAM HYDROBROMIDE [Concomitant]

REACTIONS (12)
  - AGGRESSION [None]
  - DISORIENTATION [None]
  - DRUG DEPENDENCE [None]
  - FALL [None]
  - HALLUCINATIONS, MIXED [None]
  - HEAD INJURY [None]
  - HYPERHIDROSIS [None]
  - INTENTIONAL SELF-INJURY [None]
  - IRRITABILITY [None]
  - LACERATION [None]
  - PALLOR [None]
  - SKIN HAEMORRHAGE [None]
